FAERS Safety Report 19205853 (Version 1)
Quarter: 2021Q2

REPORT INFORMATION
  Report Type: Other
  Country: US (occurrence: US)
  Receive Date: 20210503
  Receipt Date: 20210503
  Transmission Date: 20210717
  Serious: Yes (Death)
  Sender: FDA-Public Use
  Company Number: US-ROCHE-2812505

PATIENT
  Sex: Female

DRUGS (1)
  1. OCREVUS [Suspect]
     Active Substance: OCRELIZUMAB
     Indication: RELAPSING MULTIPLE SCLEROSIS
     Dosage: (300 MG ON DAY 1 AND 15,THEN 600 MG ONCE IN 6 MONTHS)?DATE OF TREATMENT:10/MAR/2020
     Route: 042

REACTIONS (1)
  - COVID-19 [Fatal]
